FAERS Safety Report 13243183 (Version 1)
Quarter: 2017Q1

REPORT INFORMATION
  Report Type: Spontaneous
  Country: KR (occurrence: KR)
  Receive Date: 20170216
  Receipt Date: 20170216
  Transmission Date: 20170428
  Serious: Yes (Hospitalization)
  Sender: FDA-Public Use
  Company Number: KR-009507513-1702KOR006699

PATIENT
  Age: 47 Year
  Sex: Female
  Weight: 51.9 kg

DRUGS (20)
  1. EMEND (FOSAPREPITANT DIMEGLUMINE) [Suspect]
     Active Substance: FOSAPREPITANT DIMEGLUMINE
     Dosage: 150 MG, ONCE
     Route: 042
     Dates: start: 20161004, end: 20161004
  2. ENDOXAN [Concomitant]
     Active Substance: CYCLOPHOSPHAMIDE
     Dosage: 834 MG, ONCE, CYCLE 3
     Route: 042
     Dates: start: 20161004, end: 20161004
  3. ADRIAMYCIN [Concomitant]
     Active Substance: DOXORUBICIN HYDROCHLORIDE
     Dosage: 70 MG, ONCE, CYCLE 4
     Route: 042
     Dates: start: 20161101, end: 20161101
  4. NASERON [Concomitant]
     Dosage: 0.3 MG, ONCE
     Route: 042
     Dates: start: 20161004, end: 20161004
  5. NASERON [Concomitant]
     Dosage: 0.3 MG, ONCE
     Route: 042
     Dates: start: 20161101, end: 20161101
  6. EMEND (FOSAPREPITANT DIMEGLUMINE) [Suspect]
     Active Substance: FOSAPREPITANT DIMEGLUMINE
     Dosage: 150 MG, ONCE
     Route: 042
     Dates: start: 20160913, end: 20160913
  7. DEXAMETHASONE. [Concomitant]
     Active Substance: DEXAMETHASONE
     Dosage: 12 MG, ONCE
     Route: 042
     Dates: start: 20161004, end: 20161004
  8. DEXAMETHASONE. [Concomitant]
     Active Substance: DEXAMETHASONE
     Dosage: 12 MG, ONCE
     Route: 042
     Dates: start: 20161101, end: 20161101
  9. ADRIAMYCIN [Concomitant]
     Active Substance: DOXORUBICIN HYDROCHLORIDE
     Indication: BREAST CANCER
     Dosage: 82 MG, ONCE, CYCLE 1
     Route: 042
     Dates: start: 20160823, end: 20160823
  10. DEXAMETHASONE. [Concomitant]
     Active Substance: DEXAMETHASONE
     Indication: PROPHYLAXIS OF NAUSEA AND VOMITING
     Dosage: 12 MG, ONCE
     Route: 042
     Dates: start: 20160823, end: 20160823
  11. DEXAMETHASONE. [Concomitant]
     Active Substance: DEXAMETHASONE
     Dosage: 12 MG, ONCE
     Route: 042
     Dates: start: 20160913, end: 20160913
  12. ENDOXAN [Concomitant]
     Active Substance: CYCLOPHOSPHAMIDE
     Indication: BREAST CANCER
     Dosage: 822 MG, ONCE, CYCLE 1
     Route: 042
     Dates: start: 20160823, end: 20160823
  13. ENDOXAN [Concomitant]
     Active Substance: CYCLOPHOSPHAMIDE
     Dosage: 834 MG, ONCE, CYCLE 2
     Route: 042
     Dates: start: 20160913, end: 20160913
  14. ENDOXAN [Concomitant]
     Active Substance: CYCLOPHOSPHAMIDE
     Dosage: 714 MG, ONCE, CYCLE 4
     Route: 042
     Dates: start: 20161101, end: 20161101
  15. NASERON [Concomitant]
     Indication: PROPHYLAXIS OF NAUSEA AND VOMITING
     Dosage: 0.3 MG, ONCE
     Route: 042
     Dates: start: 20160823, end: 20160823
  16. EMEND (FOSAPREPITANT DIMEGLUMINE) [Suspect]
     Active Substance: FOSAPREPITANT DIMEGLUMINE
     Dosage: 150 MG, ONCE
     Route: 042
     Dates: start: 20161101, end: 20161101
  17. ADRIAMYCIN [Concomitant]
     Active Substance: DOXORUBICIN HYDROCHLORIDE
     Dosage: 88 MG, ONCE, CYCLE 3
     Route: 042
     Dates: start: 20161004, end: 20161004
  18. EMEND (FOSAPREPITANT DIMEGLUMINE) [Suspect]
     Active Substance: FOSAPREPITANT DIMEGLUMINE
     Indication: PROPHYLAXIS OF NAUSEA AND VOMITING
     Dosage: 150 MG, ONCE
     Route: 042
     Dates: start: 20160823, end: 20160823
  19. ADRIAMYCIN [Concomitant]
     Active Substance: DOXORUBICIN HYDROCHLORIDE
     Dosage: 88 MG, ONCE, CYCLE 2
     Route: 042
     Dates: start: 20160913, end: 20160913
  20. NASERON [Concomitant]
     Dosage: 0.3 MG, ONCE
     Route: 042
     Dates: start: 20160913, end: 20160913

REACTIONS (3)
  - Nasopharyngitis [Not Recovered/Not Resolved]
  - Pyrexia [Recovered/Resolved]
  - Diarrhoea [Recovered/Resolved]

NARRATIVE: CASE EVENT DATE: 20161006
